FAERS Safety Report 6461080-5 (Version None)
Quarter: 2009Q4

REPORT INFORMATION
  Report Type: 
  Country: None (occurrence: None)
  Receive Date: 20091130
  Receipt Date: 20091124
  Transmission Date: 20100525
  Serious: Yes (Life-Threatening, Hospitalization)
  Sender: FDA-Public Use
  Company Number: B0607308A

PATIENT
  Sex: Male
  Weight: 79 kg

DRUGS (4)
  1. AUGMENTIN '125' [Suspect]
     Route: 048
     Dates: start: 20091007, end: 20091022
  2. BACTRIM [Suspect]
     Route: 048
     Dates: start: 20091022, end: 20091028
  3. NETILMICIN SULFATE [Suspect]
     Route: 030
     Dates: start: 20091026, end: 20091029
  4. XANAX [Concomitant]
     Dosage: .5MG PER DAY
     Route: 065

REACTIONS (25)
  - ANURIA [None]
  - BLOOD CREATININE INCREASED [None]
  - BUNDLE BRANCH BLOCK RIGHT [None]
  - CARDIOMEGALY [None]
  - CHILLS [None]
  - DIASTOLIC DYSFUNCTION [None]
  - DRUG RASH WITH EOSINOPHILIA AND SYSTEMIC SYMPTOMS [None]
  - ELECTROCARDIOGRAM T WAVE AMPLITUDE DECREASED [None]
  - EOSINOPHILIA [None]
  - FACE OEDEMA [None]
  - GENERAL PHYSICAL HEALTH DETERIORATION [None]
  - HAEMODYNAMIC INSTABILITY [None]
  - HEPATOCELLULAR INJURY [None]
  - HEPATOMEGALY [None]
  - HYPOTENSION [None]
  - INTERSTITIAL LUNG DISEASE [None]
  - N-TERMINAL PROHORMONE BRAIN NATRIURETIC PEPTIDE [None]
  - NEUTROPHILIA [None]
  - PERICARDIAL EFFUSION [None]
  - PLEURAL EFFUSION [None]
  - PRURIGO [None]
  - PYREXIA [None]
  - RESPIRATORY DISORDER [None]
  - SHOCK [None]
  - THROMBOCYTOPENIA [None]
